FAERS Safety Report 6087777-7 (Version None)
Quarter: 2009Q1

REPORT INFORMATION
  Report Type: 
  Country: None (occurrence: None)
  Receive Date: 20090219
  Receipt Date: 20090106
  Transmission Date: 20090719
  Serious: No
  Sender: FDA-Public Use
  Company Number: WAES 0901USA00390

PATIENT
  Sex: Male

DRUGS (2)
  1. JANUVIA [Suspect]
     Dosage: 100 MG/DAILY/PO
     Route: 048
     Dates: end: 20090105
  2. AMARYL [Concomitant]

REACTIONS (12)
  - COUGH [None]
  - DRUG INEFFECTIVE [None]
  - HEAD DISCOMFORT [None]
  - HEADACHE [None]
  - INCREASED UPPER AIRWAY SECRETION [None]
  - MALAISE [None]
  - NASAL DISCOMFORT [None]
  - OROPHARYNGEAL DISCOMFORT [None]
  - PHOTOPSIA [None]
  - PYREXIA [None]
  - VIRAL UPPER RESPIRATORY TRACT INFECTION [None]
  - WEIGHT INCREASED [None]
